FAERS Safety Report 5877699-6 (Version None)
Quarter: 2008Q3

REPORT INFORMATION
  Report Type: 
  Country: None (occurrence: None)
  Receive Date: 20080911
  Receipt Date: 20080904
  Transmission Date: 20090109
  Serious: Yes (Hospitalization)
  Sender: FDA-Public Use
  Company Number: US-JNJFOC-20080500377

PATIENT
  Sex: Female
  Weight: 68.04 kg

DRUGS (4)
  1. ORTHO EVRA [Suspect]
     Indication: CONTRACEPTION
     Route: 062
  2. PROCARDIA XL [Concomitant]
  3. MICARDIS [Concomitant]
  4. IBUPROFEN [Concomitant]

REACTIONS (2)
  - PNEUMONIA [None]
  - PULMONARY EMBOLISM [None]
